FAERS Safety Report 6932299-1 (Version None)
Quarter: 2010Q3

REPORT INFORMATION
  Report Type: 
  Country: None (occurrence: None)
  Receive Date: 20100812
  Receipt Date: 20090316
  Transmission Date: 20110219
  Serious: No
  Sender: FDA-Public Use
  Company Number: 2009-01064

PATIENT
  Sex: Female
  Weight: 61.2356 kg

DRUGS (1)
  1. ZICAM COLD REMEDY NASAL GEL [Suspect]
     Indication: NASOPHARYNGITIS
     Dosage: QID X 1 DAY
     Dates: start: 20090314, end: 20090315

REACTIONS (2)
  - AGEUSIA [None]
  - ANOSMIA [None]
